FAERS Safety Report 12311268 (Version 6)
Quarter: 2016Q2

REPORT INFORMATION
  Report Type: Spontaneous
  Country: AU (occurrence: AU)
  Receive Date: 20160427
  Receipt Date: 20160614
  Transmission Date: 20160815
  Serious: Yes (Hospitalization, Other)
  Sender: FDA-Public Use
  Company Number: AU-PFIZER INC-2016143322

PATIENT
  Age: 46 Year
  Sex: Female

DRUGS (2)
  1. PROVERA [Suspect]
     Active Substance: MEDROXYPROGESTERONE ACETATE
     Indication: MENORRHAGIA
     Dosage: 5 MG, UNK
     Dates: start: 20030919, end: 20031126
  2. CIPRAMIL /00582603/ [Interacting]
     Active Substance: CITALOPRAM HYDROBROMIDE
     Dosage: UNK
     Dates: start: 2000, end: 2004

REACTIONS (12)
  - Suicidal ideation [Unknown]
  - Irritability [Recovered/Resolved]
  - Dizziness [Unknown]
  - Depression [Unknown]
  - Drug interaction [Recovered/Resolved]
  - Premenstrual syndrome [Unknown]
  - Varicose vein [Unknown]
  - Condition aggravated [Unknown]
  - Anaemia [Unknown]
  - Pain in extremity [Recovered/Resolved]
  - Syncope [Unknown]
  - Condition aggravated [Unknown]

NARRATIVE: CASE EVENT DATE: 20030919
